FAERS Safety Report 15810928 (Version 1)
Quarter: 2019Q1

REPORT INFORMATION
  Report Type: Spontaneous
  Country: DE (occurrence: DE)
  Receive Date: 20190111
  Receipt Date: 20190111
  Transmission Date: 20190417
  Serious: Yes (Hospitalization)
  Sender: FDA-Public Use
  Company Number: DE-TEVA-2019-DE-995181

PATIENT
  Age: 83 Year
  Sex: Female

DRUGS (2)
  1. ALENDRONSAEURE 70 MG TABLETTEN [Suspect]
     Active Substance: ALENDRONATE SODIUM
     Route: 048
  2. ALENDRONSAEURE 70 MG TABLETTEN [Suspect]
     Active Substance: ALENDRONATE SODIUM
     Dosage: 70 MILLIGRAM DAILY;
     Route: 048

REACTIONS (6)
  - General physical condition decreased [Unknown]
  - Unresponsive to stimuli [Unknown]
  - Wrong dose [Unknown]
  - Cardiac failure [Unknown]
  - Depressed level of consciousness [Unknown]
  - Incorrect dose administered [Unknown]
